FAERS Safety Report 5334247-7 (Version None)
Quarter: 2007Q2

REPORT INFORMATION
  Report Type: 
  Country: None (occurrence: None)
  Receive Date: 20070523
  Receipt Date: 20070523
  Transmission Date: 20071010
  Serious: Yes (Hospitalization)
  Sender: FDA-Public Use
  Company Number: None

PATIENT
  Sex: Male
  Weight: 115.6672 kg

DRUGS (10)
  1. REVLIMID [Suspect]
     Indication: MULTIPLE MYELOMA
     Dosage: 25 MG DAILY PO
     Route: 048
     Dates: start: 20070309, end: 20070320
  2. METOCLOPRAMIDE [Concomitant]
  3. ACETAMINOPHEN AND HYDROCODONE BITARTRATE [Concomitant]
  4. PROCRIT [Concomitant]
  5. ATENOLOL [Concomitant]
  6. FOLIC ACID [Concomitant]
  7. PROCHLORPERAZINE [Concomitant]
  8. ONDANSETRON [Concomitant]
  9. DIPHENHYDRAMINE HCL [Concomitant]
  10. FELODIPINE ER [Concomitant]

REACTIONS (2)
  - GINGIVAL BLEEDING [None]
  - PNEUMONIA [None]
